FAERS Safety Report 13790556 (Version 2)
Quarter: 2017Q3

REPORT INFORMATION
  Report Type: Spontaneous
  Country: US (occurrence: US)
  Receive Date: 20170725
  Receipt Date: 20170818
  Transmission Date: 20171127
  Serious: Yes (Other)
  Sender: FDA-Public Use
  Company Number: US-BAYER-2017-138858

PATIENT
  Age: 28 Year
  Sex: Female

DRUGS (1)
  1. MIRENA [Suspect]
     Active Substance: LEVONORGESTREL
     Dosage: 20 MCG/24HR, CONT
     Route: 015
     Dates: start: 20080523

REACTIONS (9)
  - Cerebrovascular stenosis [None]
  - Visual impairment [None]
  - Visual field defect [None]
  - Papilloedema [None]
  - Nausea [None]
  - Vomiting [None]
  - Intracranial pressure increased [None]
  - Headache [None]
  - Vitreous floaters [None]

NARRATIVE: CASE EVENT DATE: 20080923
